FAERS Safety Report 5520927-7 (Version None)
Quarter: 2007Q4

REPORT INFORMATION
  Report Type: 
  Country: None (occurrence: None)
  Receive Date: 20071116
  Receipt Date: 20071116
  Transmission Date: 20080405
  Serious: Yes (Other)
  Sender: FDA-Public Use
  Company Number: None

PATIENT
  Age: 32 Year
  Sex: Female
  Weight: 72.5755 kg

DRUGS (1)
  1. BOTOX COSMETIC [Suspect]
     Indication: SKIN WRINKLING
     Dosage: 5 INJECTIONS ON FOREHEAD AREA
     Dates: start: 20071026, end: 20071026

REACTIONS (10)
  - DRUG HYPERSENSITIVITY [None]
  - DRY EYE [None]
  - EYE IRRITATION [None]
  - EYE PRURITUS [None]
  - EYELID OEDEMA [None]
  - EYELID PTOSIS [None]
  - HEADACHE [None]
  - REACTION TO DRUG EXCIPIENTS [None]
  - SWELLING [None]
  - UNEVALUABLE EVENT [None]
